FAERS Safety Report 11175351 (Version 5)
Quarter: 2015Q3

REPORT INFORMATION
  Report Type: Report from Study
  Country: IT (occurrence: IT)
  Receive Date: 20150609
  Receipt Date: 20150720
  Transmission Date: 20151125
  Serious: Yes (Life-Threatening, Hospitalization)
  Sender: FDA-Public Use
  Company Number: IT-PFIZER INC-2015191960

PATIENT
  Age: 78 Year
  Sex: Female

DRUGS (17)
  1. DIGOXIN. [Concomitant]
     Active Substance: DIGOXIN
     Indication: ATRIAL FIBRILLATION
     Dosage: 0.125 MG, DAILY
     Route: 048
     Dates: start: 201505
  2. ESCITALOPRAM [Concomitant]
     Active Substance: ESCITALOPRAM OXALATE
     Indication: PROPHYLAXIS
     Dosage: 20 MG, DAILY
     Route: 048
     Dates: end: 20150505
  3. BOSUTINIB [Suspect]
     Active Substance: BOSUTINIB
     Dosage: 300 MG, 1X/DAY
     Route: 048
     Dates: start: 20150303, end: 20150324
  4. BOSUTINIB [Suspect]
     Active Substance: BOSUTINIB
     Dosage: 300 MG, 1X/DAY
     Route: 048
     Dates: start: 20150401, end: 20150518
  5. FUROSEMIDE. [Concomitant]
     Active Substance: FUROSEMIDE
     Indication: HYPERTENSION
     Dosage: 25 MG, DAILY
     Route: 048
     Dates: end: 20150505
  6. ACENOCOUMAROL [Concomitant]
     Active Substance: ACENOCOUMAROL
     Indication: ATRIAL FIBRILLATION
     Dosage: 1 MG, DAILY
     Route: 048
     Dates: start: 2010, end: 20150505
  7. TRAVOPROST [Concomitant]
     Active Substance: TRAVOPROST
     Indication: PROPHYLAXIS
     Dosage: 1 DROP, AS NEEDED
     Route: 047
     Dates: end: 20150607
  8. LORAZEPAM. [Concomitant]
     Active Substance: LORAZEPAM
     Indication: PROPHYLAXIS
     Dosage: 1 MG, AS NEEDED
     Route: 048
     Dates: start: 20150311, end: 20150607
  9. ALLOPURINOL. [Concomitant]
     Active Substance: ALLOPURINOL
     Indication: BLOOD URIC ACID
     Dosage: 300 MG, DAILY
     Route: 048
     Dates: start: 20150205, end: 20150505
  10. SPIRONOLACTONE. [Concomitant]
     Active Substance: SPIRONOLACTONE
     Indication: HYPERTENSION
     Dosage: 25 MG, ALTERNATE DAY
     Route: 048
     Dates: start: 20150505
  11. AMLODIPINE [Concomitant]
     Active Substance: AMLODIPINE BESYLATE
     Indication: HYPERTENSION
     Dosage: 5 MG, DAILY
     Route: 048
     Dates: end: 20150607
  12. RAMIPRIL. [Concomitant]
     Active Substance: RAMIPRIL
     Indication: HYPERTENSION
     Dosage: 5 MG, DAILY
     Route: 048
  13. BOSUTINIB [Suspect]
     Active Substance: BOSUTINIB
     Dosage: 300 MG, DAILY
     Route: 048
     Dates: start: 20150522, end: 20150531
  14. VERAPAMIL [Concomitant]
     Active Substance: VERAPAMIL HYDROCHLORIDE
     Indication: ATRIAL FIBRILLATION
     Dosage: 40 MG, 3X/DAY
     Route: 048
     Dates: start: 201411, end: 20150607
  15. DOXAZOSIN [Concomitant]
     Active Substance: DOXAZOSIN\DOXAZOSIN MESYLATE
     Indication: HYPERTENSION
     Dosage: 2 MG, DAILY
     Route: 048
     Dates: end: 20150607
  16. BOSUTINIB [Suspect]
     Active Substance: BOSUTINIB
     Indication: CHRONIC MYELOID LEUKAEMIA
     Dosage: 400 MG, 1X/DAY
     Route: 048
     Dates: start: 20150211, end: 20150226
  17. OMEPRAZOLE. [Concomitant]
     Active Substance: OMEPRAZOLE
     Indication: PROPHYLAXIS
     Dosage: 20 MG, DAILY
     Route: 048
     Dates: start: 20150505

REACTIONS (1)
  - Medical device site haematoma [Recovered/Resolved]

NARRATIVE: CASE EVENT DATE: 20150601
